FAERS Safety Report 6866118-9 (Version None)
Quarter: 2010Q3

REPORT INFORMATION
  Report Type: 
  Country: None (occurrence: None)
  Receive Date: 20100722
  Receipt Date: 20100713
  Transmission Date: 20110219
  Serious: No
  Sender: FDA-Public Use
  Company Number: US-JNJFOC-20100704227

PATIENT
  Sex: Male
  Weight: 65.77 kg

DRUGS (6)
  1. FENTANYL-100 [Suspect]
     Indication: BACK PAIN
     Route: 062
  2. SANDOZ FENTANYL TRANSDERMAL SYSTEM [Suspect]
     Indication: BACK PAIN
     Dosage: NDC NUMBER: 0781-7111-55
     Route: 062
  3. COUMADIN [Concomitant]
     Indication: HEART VALVE REPLACEMENT
     Dosage: 2 MG/TABLET/1MG/FOUR DAYS PER WEEK
     Route: 048
  4. COUMADIN [Concomitant]
     Dosage: 3 MG/TABLET/1MG/THREE DAYS PER WEEK
     Route: 048
  5. UNKNOWN MEDICATION [Concomitant]
     Indication: RESPIRATORY DISORDER
     Route: 065
  6. PLAVIX [Concomitant]
     Indication: STENT PLACEMENT
     Route: 065

REACTIONS (1)
  - WRONG TECHNIQUE IN DRUG USAGE PROCESS [None]
